FAERS Safety Report 23192597 (Version 1)
Quarter: 2023Q4

REPORT INFORMATION
  Report Type: Spontaneous
  Country: US (occurrence: US)
  Receive Date: 20231116
  Receipt Date: 20231116
  Transmission Date: 20240110
  Serious: No
  Sender: FDA-Public Use
  Company Number: US-SA-SAC20231108000231

PATIENT
  Sex: Female
  Weight: 127 kg

DRUGS (4)
  1. DUPIXENT [Suspect]
     Active Substance: DUPILUMAB
     Indication: Dermatitis atopic
     Dosage: 300 MG, QOW
     Route: 058
     Dates: start: 202105
  2. CIBINQO [Concomitant]
     Active Substance: ABROCITINIB
  3. ASPIRIN [Concomitant]
     Active Substance: ASPIRIN
  4. IRON [Concomitant]
     Active Substance: IRON

REACTIONS (11)
  - Sleep disorder [Unknown]
  - Haemorrhage [Unknown]
  - Skin weeping [Unknown]
  - Vision blurred [Recovered/Resolved]
  - Visual impairment [Recovered/Resolved]
  - Skin fissures [Unknown]
  - Dry skin [Unknown]
  - Skin exfoliation [Unknown]
  - Pruritus [Unknown]
  - Eye irritation [Recovered/Resolved]
  - Eye pruritus [Recovered/Resolved]
